FAERS Safety Report 12542727 (Version 1)
Quarter: 2016Q3

REPORT INFORMATION
  Report Type: Report from Study
  Country: MX (occurrence: MX)
  Receive Date: 20160709
  Receipt Date: 20160709
  Transmission Date: 20161109
  Serious: Yes (Other)
  Sender: FDA-Public Use
  Company Number: MX-AMGEN-MEXSL2016087554

PATIENT
  Age: 68 Year
  Sex: Female
  Weight: 57 kg

DRUGS (1)
  1. VECTIBIX [Suspect]
     Active Substance: PANITUMUMAB
     Indication: COLORECTAL CANCER METASTATIC
     Dosage: UNK, Q15D
     Route: 042
     Dates: start: 201605

REACTIONS (9)
  - Dry mouth [Unknown]
  - Immunodeficiency [Unknown]
  - Burning sensation [Unknown]
  - Skin exfoliation [Unknown]
  - Tongue dry [Unknown]
  - Peripheral swelling [Unknown]
  - Tongue discomfort [Unknown]
  - Oral discomfort [Unknown]
  - Dry skin [Unknown]

NARRATIVE: CASE EVENT DATE: 2016
